FAERS Safety Report 5101885-6 (Version None)
Quarter: 2006Q3

REPORT INFORMATION
  Report Type: 
  Country: None (occurrence: None)
  Receive Date: 20060907
  Receipt Date: 20060816
  Transmission Date: 20061208
  Serious: Yes (Hospitalization)
  Sender: FDA-Public Use
  Company Number: US200608003677

PATIENT
  Age: 72 Year
  Sex: Female

DRUGS (3)
  1. FORTEO [Suspect]
     Indication: OSTEOPOROSIS
     Dates: start: 20051201, end: 20060512
  2. FORTEO [Suspect]
     Indication: OSTEOPOROSIS
     Dates: start: 20060701
  3. FORTEO [Concomitant]

REACTIONS (7)
  - FALL [None]
  - FEMUR FRACTURE [None]
  - INJECTION SITE BRUISING [None]
  - JOINT SPRAIN [None]
  - MENTAL DISORDER [None]
  - PATHOLOGICAL FRACTURE [None]
  - PHARMACEUTICAL PRODUCT COMPLAINT [None]
